FAERS Safety Report 4654426-1 (Version None)
Quarter: 2005Q2

REPORT INFORMATION
  Report Type: 
  Country: None (occurrence: None)
  Receive Date: 20050404
  Receipt Date: 20050106
  Transmission Date: 20051028
  Serious: No
  Sender: FDA-Public Use
  Company Number: USA050187884

PATIENT
  Age: 55 Year
  Sex: Male

DRUGS (5)
  1. CYMBALTA [Suspect]
     Indication: BIPOLAR I DISORDER
     Dosage: 30 MG/2 DAY
     Dates: start: 20041216, end: 20041223
  2. NEURONTIN [Concomitant]
  3. TOPAMAX [Concomitant]
  4. DESYRIL (TRAZODONE HYDROCHLORIDE0 [Concomitant]
  5. ZOLOFT (SERTRALINE HYDROCHLORIE) [Concomitant]

REACTIONS (19)
  - ABDOMINAL DISTENSION [None]
  - BALANCE DISORDER [None]
  - BURNING SENSATION [None]
  - CHEST PAIN [None]
  - CONSTIPATION [None]
  - DEPRESSION [None]
  - DYSPNOEA EXERTIONAL [None]
  - FATIGUE [None]
  - INCREASED APPETITE [None]
  - INSOMNIA [None]
  - MUSCLE SPASMS [None]
  - MUSCLE TIGHTNESS [None]
  - MUSCULAR WEAKNESS [None]
  - PAIN [None]
  - RASH PRURITIC [None]
  - TREMOR [None]
  - URINARY HESITATION [None]
  - URINARY RETENTION [None]
  - VISION BLURRED [None]
